FAERS Safety Report 19820676 (Version 1)
Quarter: 2021Q3

REPORT INFORMATION
  Report Type: Spontaneous
  Country: US (occurrence: US)
  Receive Date: 20210912
  Receipt Date: 20210912
  Transmission Date: 20211014
  Serious: No
  Sender: FDA-Public Use
  Company Number: None

PATIENT
  Age: 71 Year
  Sex: Male
  Weight: 79.65 kg

DRUGS (1)
  1. TOLAK [Suspect]
     Active Substance: FLUOROURACIL
     Indication: PRECANCEROUS SKIN LESION
     Dosage: ?          QUANTITY:1 SMALL AMOUNT COVER;?
     Route: 061
     Dates: start: 20210817, end: 20210830

REACTIONS (2)
  - Subcutaneous abscess [None]
  - Lymphadenopathy [None]

NARRATIVE: CASE EVENT DATE: 20210823
